FAERS Safety Report 8725433 (Version 3)
Quarter: 2013Q4

REPORT INFORMATION
  Report Type: Spontaneous
  Country: US (occurrence: US)
  Receive Date: 20120815
  Receipt Date: 20131115
  Transmission Date: 20140711
  Serious: No
  Sender: FDA-Public Use
  Company Number: US-ASTRAZENECA-2012SE56274

PATIENT
  Age: 41 Year
  Sex: Female
  Weight: 113.4 kg

DRUGS (8)
  1. NEXIUM [Suspect]
     Indication: GASTROOESOPHAGEAL REFLUX DISEASE
     Route: 048
     Dates: start: 2000, end: 201207
  2. NEXIUM [Suspect]
     Indication: GASTROOESOPHAGEAL REFLUX DISEASE
     Route: 048
  3. ZOLOFT [Concomitant]
     Indication: ANXIETY
  4. PERCOCET [Concomitant]
     Indication: BACK PAIN
  5. PERCOCET [Concomitant]
     Indication: SCIATICA
  6. LYRICA [Concomitant]
     Indication: NEURALGIA
  7. METFORMIN [Concomitant]
     Indication: GLUCOSE TOLERANCE IMPAIRED
  8. MUSCLE RELAXER [Concomitant]

REACTIONS (12)
  - Exposure during pregnancy [Unknown]
  - Adverse event [Unknown]
  - Dyspepsia [Unknown]
  - Anxiety [Unknown]
  - Glucose tolerance impaired [Unknown]
  - Nerve compression [Unknown]
  - Arthritis [Unknown]
  - Sciatica [Unknown]
  - Abdominal discomfort [Unknown]
  - Intentional drug misuse [Unknown]
  - Drug dose omission [Unknown]
  - Gastrointestinal pain [Unknown]
